FAERS Safety Report 25712912 (Version 1)
Quarter: 2025Q3

REPORT INFORMATION
  Report Type: Spontaneous
  Country: CA (occurrence: CA)
  Receive Date: 20250821
  Receipt Date: 20250821
  Transmission Date: 20251020
  Serious: Yes (Hospitalization)
  Sender: JOHNSON AND JOHNSON
  Company Number: CA-JNJFOC-20250826794

PATIENT
  Age: 13 Year
  Sex: Female
  Weight: 41 kg

DRUGS (1)
  1. XARELTO [Suspect]
     Active Substance: RIVAROXABAN
     Indication: Cardiovascular event prophylaxis
     Dosage: 15 MG, QD
     Route: 048

REACTIONS (6)
  - Transfusion [Unknown]
  - Heavy menstrual bleeding [Recovered/Resolved]
  - Orthostatic hypotension [Recovered/Resolved]
  - Anaemia [Recovered/Resolved]
  - Dyspnoea exertional [Recovered/Resolved]
  - Asthenia [Recovered/Resolved]
